FAERS Safety Report 11562694 (Version 1)
Quarter: 2015Q3

REPORT INFORMATION
  Report Type: Spontaneous
  Country: US (occurrence: US)
  Receive Date: 20150916
  Receipt Date: 20150916
  Transmission Date: 20151125
  Serious: No
  Sender: FDA-Public Use
  Company Number: US-ELI_LILLY_AND_COMPANY-US200812004493

PATIENT
  Sex: Female

DRUGS (1)
  1. FORTEO [Suspect]
     Active Substance: TERIPARATIDE
     Dosage: UNK, UNK
     Dates: start: 200606

REACTIONS (9)
  - Visual impairment [Unknown]
  - Agitation [Unknown]
  - Memory impairment [Not Recovered/Not Resolved]
  - Fear [Unknown]
  - Bone density decreased [Unknown]
  - Urinary tract infection [Recovered/Resolved]
  - Hearing impaired [Not Recovered/Not Resolved]
  - Fall [Recovered/Resolved]
  - Joint injury [Recovered/Resolved]

NARRATIVE: CASE EVENT DATE: 2007
